FAERS Safety Report 4971498-5 (Version None)
Quarter: 2006Q2

REPORT INFORMATION
  Report Type: 
  Country: None (occurrence: None)
  Receive Date: 20060413
  Receipt Date: 20060331
  Transmission Date: 20061013
  Serious: Yes (Hospitalization)
  Sender: FDA-Public Use
  Company Number: PHHO2006GR05303

PATIENT
  Age: 9 Year
  Sex: Male
  Weight: 31 kg

DRUGS (1)
  1. ICL670A [Suspect]
     Indication: BLOOD IRON INCREASED
     Dosage: 625 MG DAILY
     Route: 048
     Dates: start: 20060321, end: 20060329

REACTIONS (3)
  - PRURITUS [None]
  - PYREXIA [None]
  - RASH [None]
